FAERS Safety Report 10077773 (Version 2)
Quarter: 2014Q2

REPORT INFORMATION
  Report Type: Spontaneous
  Country: US (occurrence: US)
  Receive Date: 20140414
  Receipt Date: 20140414
  Transmission Date: 20141212
  Serious: No
  Sender: FDA-Public Use
  Company Number: US-GILEAD-2014-0098862

PATIENT
  Sex: Female

DRUGS (2)
  1. SOVALDI [Suspect]
     Indication: HEPATITIS C
     Dosage: 400 MG, QD
     Route: 048
     Dates: start: 20140307
  2. RIBAVIRIN [Concomitant]
     Indication: HEPATITIS C
     Dosage: 1000 MG, 3 IN AM, 2 IN PM
     Route: 048
     Dates: start: 20140307

REACTIONS (2)
  - Agitation [Unknown]
  - Irritability [Unknown]
